FAERS Safety Report 15306545 (Version 1)
Quarter: 2018Q3

REPORT INFORMATION
  Report Type: Spontaneous
  Country: US (occurrence: US)
  Receive Date: 20180810
  Receipt Date: 20180810
  Transmission Date: 20181010
  Serious: Yes (Other)
  Sender: FDA-Public Use
  Company Number: None

PATIENT
  Age: 42 Year
  Sex: Female
  Weight: 67.5 kg

DRUGS (1)
  1. BUPROPION XL 300 MG [Suspect]
     Active Substance: BUPROPION
     Indication: DEPRESSION
     Dosage: ?          QUANTITY:30 TABLET(S);?
     Route: 048
     Dates: start: 20180517, end: 20180705

REACTIONS (5)
  - Anger [None]
  - Pain [None]
  - Headache [None]
  - Medication residue present [None]
  - Emotional disorder [None]

NARRATIVE: CASE EVENT DATE: 20180615
